FAERS Safety Report 4553339-3 (Version None)
Quarter: 2005Q1

REPORT INFORMATION
  Report Type: 
  Country: None (occurrence: None)
  Receive Date: 20050112
  Receipt Date: 20050103
  Transmission Date: 20050727
  Serious: Yes (Hospitalization)
  Sender: FDA-Public Use
  Company Number: 2005CG00024

PATIENT
  Age: 78 Year
  Sex: Female

DRUGS (11)
  1. ATACAND [Suspect]
     Dosage: 1 DF DAILY PO
     Route: 048
     Dates: start: 20040615, end: 20040912
  2. GLUCOPHAGE [Suspect]
     Dosage: 1700 MG DAILY PO
     Route: 048
     Dates: start: 20000615, end: 20040912
  3. LASILIX [Suspect]
     Dosage: 100 MG DAILY PO
     Route: 048
     Dates: start: 20030615, end: 20040912
  4. LASILIX [Suspect]
     Dosage: 40 MG DAILY PO
     Route: 048
     Dates: start: 20040914
  5. ALDACTONE [Suspect]
     Dosage: 50 MG DAILY PO
     Route: 048
     Dates: start: 20030615, end: 20040912
  6. TAHOR [Suspect]
     Dates: start: 20030615, end: 20040912
  7. SOPROL [Suspect]
     Dosage: 5 MG DAILY PO
     Route: 048
     Dates: start: 20020615, end: 20040912
  8. ZYLORIC ^GLAXO WELLCOME^ [Suspect]
     Dates: start: 20030615, end: 20040912
  9. DAFLON [Suspect]
     Dosage: 3 DF DAILY PO
     Route: 048
     Dates: start: 20010615, end: 20040912
  10. PIASCLEDINE [Suspect]
     Dates: start: 20010615, end: 20040912
  11. AMAREL [Concomitant]

REACTIONS (6)
  - BLOOD CREATININE INCREASED [None]
  - BLOOD SODIUM DECREASED [None]
  - BLOOD UREA INCREASED [None]
  - DEPRESSED LEVEL OF CONSCIOUSNESS [None]
  - DIARRHOEA [None]
  - HYPOGLYCAEMIA [None]
